FAERS Safety Report 22532989 (Version 1)
Quarter: 2023Q2

REPORT INFORMATION
  Report Type: Spontaneous
  Country: US (occurrence: US)
  Receive Date: 20230607
  Receipt Date: 20230607
  Transmission Date: 20230722
  Serious: No
  Sender: FDA-Public Use
  Company Number: US-GALDERMA-US2023007713

PATIENT

DRUGS (10)
  1. PROACTIV MD ADAPALENE ACNE TREATMENT [Suspect]
     Active Substance: ADAPALENE
     Indication: Acne
     Dosage: 1 DOSAGE FORM, QD, EVERY NIGHT, DIME SIZE
     Route: 061
     Dates: start: 202301
  2. PROACTIV MD ADAPALENE ACNE TREATMENT [Suspect]
     Active Substance: ADAPALENE
     Indication: Acne cystic
  3. Proactiv MD Ultra Gentle Cleanser [Concomitant]
     Indication: Acne
     Dosage: 1 DOSAGE FORM, QD, ALL OVER HER FACE, DIME SIZE
     Route: 061
     Dates: start: 202301
  4. Proactiv MD Ultra Gentle Cleanser [Concomitant]
     Indication: Acne cystic
  5. Proactiv MD Ultra Hydrating Moisturizer [Concomitant]
     Indication: Acne
     Dosage: 1 DOSAGE FORM, QD, ALL OVER HER FACE, DIME SIZE
     Route: 061
     Dates: start: 202301
  6. Proactiv MD Ultra Hydrating Moisturizer [Concomitant]
     Indication: Acne cystic
  7. Proactiv Post Acne Dark Mark Relief [Concomitant]
     Indication: Acne
     Dosage: 1 DOSAGE FORM, QD, ALL OVER HER FACE, DIME SIZE
     Route: 061
     Dates: start: 202301
  8. Proactiv Post Acne Dark Mark Relief [Concomitant]
     Indication: Acne cystic
  9. Proactiv Post Acne Scar Gel [Concomitant]
     Indication: Acne
     Dosage: 1 DOSAGE FORM, QD, ALL OVER HER FACE, DIME SIZE
     Route: 061
     Dates: start: 202301
  10. Proactiv Post Acne Scar Gel [Concomitant]
     Indication: Acne cystic

REACTIONS (2)
  - Drug ineffective for unapproved indication [Recovered/Resolved]
  - Product use in unapproved indication [Recovered/Resolved]
